FAERS Safety Report 17052050 (Version 1)
Quarter: 2019Q4

REPORT INFORMATION
  Report Type: Report from Study
  Country: US (occurrence: US)
  Receive Date: 20191120
  Receipt Date: 20191120
  Transmission Date: 20200122
  Serious: Yes (Other)
  Sender: FDA-Public Use
  Company Number: US-TEVA-2019-US-1137569

PATIENT
  Sex: Female

DRUGS (2)
  1. COPAXONE [Suspect]
     Active Substance: GLATIRAMER ACETATE
     Dosage: FORM STRENGTH: UNKNOWN
  2. OCREVUS [Suspect]
     Active Substance: OCRELIZUMAB
     Route: 065

REACTIONS (9)
  - Injection site mass [Unknown]
  - Throat tightness [Unknown]
  - Skin disorder [Unknown]
  - Cognitive disorder [Unknown]
  - Anaphylactic shock [Unknown]
  - Headache [Unknown]
  - Contusion [Unknown]
  - Erythema [Unknown]
  - Feeling abnormal [Unknown]
